FAERS Safety Report 9359799 (Version 2)
Quarter: 2013Q3

REPORT INFORMATION
  Report Type: Spontaneous
  Country: CA (occurrence: CA)
  Receive Date: 20130621
  Receipt Date: 20130711
  Transmission Date: 20140515
  Serious: Yes (Other)
  Sender: FDA-Public Use
  Company Number: CA-AMGEN-CANSP2013043034

PATIENT
  Age: 59 Year
  Sex: Female

DRUGS (1)
  1. PROLIA [Suspect]
     Indication: OSTEOPOROSIS POSTMENOPAUSAL
     Dosage: 60 MG, UNK
     Dates: start: 20111222

REACTIONS (7)
  - Palpitations [Unknown]
  - Chest pain [Unknown]
  - Muscle spasms [Unknown]
  - Tendon pain [Recovered/Resolved]
  - Feeling hot [Recovered/Resolved]
  - Abasia [Unknown]
  - Erythema [Recovering/Resolving]
